FAERS Safety Report 10051469 (Version 1)
Quarter: 2014Q1

REPORT INFORMATION
  Report Type: Spontaneous
  Country: US (occurrence: None)
  Receive Date: 20140328
  Receipt Date: 20140328
  Transmission Date: 20141002
  Serious: Yes (Other)
  Sender: FDA-Public Use
  Company Number: 2014-US-003212

PATIENT
  Age: 72 Year
  Sex: Female
  Weight: 59 kg

DRUGS (14)
  1. XYREM [Suspect]
     Indication: NARCOLEPSY
     Dosage: DOSE ADJUSTMENTS, ORAL
     Route: 048
     Dates: start: 200306
  2. XYREM [Suspect]
     Indication: CATAPLEXY
     Dosage: DOSE ADJUSTMENTS, ORAL
     Route: 048
     Dates: start: 200306
  3. XYREM [Suspect]
     Dosage: DOSE ADJUSTMENTS, ORAL
     Route: 048
     Dates: start: 200306
  4. FLONASE (FLUTICASONE PROPIONATE) [Concomitant]
  5. MULTIVITAMIN (VITAMINS NOS) [Concomitant]
  6. PROVIGIL (MODAFINIL) [Concomitant]
  7. LOVASTATIN (LOVASTATIN) [Concomitant]
  8. S-ADENOSYL-L-METHIONINE (S-ADENOSYL-L-METHIONINE) [Concomitant]
  9. RESTASIS (CICLOSPORIN) [Concomitant]
  10. COENZYME Q10 (UBIDECARENONE) [Concomitant]
  11. GLUCOSAMINE (GLUCOSAMINE) [Concomitant]
  12. VITRON C (ASCORBIC ACID, FERROUS FUMARATE) [Concomitant]
  13. VITAMIN E (TOCOPHERYL ACID SUCCINATE) [Concomitant]
  14. OMEGA-3 (DOCOSAHEXAENOIC ACID, ELCOSAPENTAENOIC ACID) [Concomitant]

REACTIONS (4)
  - Urinary incontinence [None]
  - Bladder neck suspension [None]
  - Osteopenia [None]
  - Vitamin D decreased [None]
